FAERS Safety Report 6616108-6 (Version None)
Quarter: 2010Q1

REPORT INFORMATION
  Report Type: 
  Country: None (occurrence: None)
  Receive Date: 20100305
  Receipt Date: 20100226
  Transmission Date: 20100710
  Serious: Yes (Hospitalization)
  Sender: FDA-Public Use
  Company Number: JP-MERCK-1001USA03309

PATIENT
  Age: 78 Year
  Sex: Male
  Weight: 56 kg

DRUGS (7)
  1. JANUVIA [Suspect]
     Indication: DIABETES MELLITUS
     Route: 048
     Dates: start: 20100106, end: 20100109
  2. AMARYL [Concomitant]
     Indication: DIABETES MELLITUS
     Route: 048
     Dates: start: 20081208, end: 20100109
  3. METFORMIN HCL [Concomitant]
     Indication: DIABETES MELLITUS
     Route: 048
     Dates: start: 20090202, end: 20100109
  4. GLUCOBAY [Concomitant]
     Indication: DIABETES MELLITUS
     Route: 048
     Dates: start: 20070410, end: 20100109
  5. ACTOS [Concomitant]
     Indication: DIABETES MELLITUS
     Route: 048
     Dates: start: 20080627, end: 20100109
  6. RADICUT [Concomitant]
     Route: 042
     Dates: start: 20100109
  7. CATACLOT [Concomitant]
     Route: 042
     Dates: start: 20100109

REACTIONS (2)
  - HYPOGLYCAEMIA [None]
  - HYPONATRAEMIA [None]
